FAERS Safety Report 16567959 (Version 2)
Quarter: 2019Q3

REPORT INFORMATION
  Report Type: Report from Study
  Country: US (occurrence: US)
  Receive Date: 20190712
  Receipt Date: 20190807
  Transmission Date: 20191004
  Serious: Yes (Hospitalization, Other)
  Sender: FDA-Public Use
  Company Number: US-ACTELION-A-US2019-193023

PATIENT
  Age: 68 Year
  Sex: Male

DRUGS (18)
  1. OPSUMIT [Suspect]
     Active Substance: MACITENTAN
     Indication: PULMONARY ARTERIAL HYPERTENSION
     Dosage: 10 MG
     Route: 048
     Dates: start: 201606
  2. HYDROCORTISONE. [Concomitant]
     Active Substance: HYDROCORTISONE
  3. APIXABAN [Concomitant]
     Active Substance: APIXABAN
  4. PANTOPRAZOLE [Concomitant]
     Active Substance: PANTOPRAZOLE
  5. OPSUMIT [Suspect]
     Active Substance: MACITENTAN
     Dosage: 10 MG, QD
     Route: 048
  6. TORSEMIDE. [Concomitant]
     Active Substance: TORSEMIDE
  7. GABAPENTIN. [Concomitant]
     Active Substance: GABAPENTIN
  8. NARCAN [Concomitant]
     Active Substance: NALOXONE HYDROCHLORIDE
  9. TRAZODONE [Concomitant]
     Active Substance: TRAZODONE HYDROCHLORIDE
  10. ALLOPURINOL. [Concomitant]
     Active Substance: ALLOPURINOL
  11. ALBUTEROL HFA [Concomitant]
     Active Substance: ALBUTEROL SULFATE
  12. EPLERENONE. [Concomitant]
     Active Substance: EPLERENONE
  13. ATORVASTATIN [Concomitant]
     Active Substance: ATORVASTATIN
  14. SILDENAFIL. [Concomitant]
     Active Substance: SILDENAFIL
  15. TYVASO [Concomitant]
     Active Substance: TREPROSTINIL
  16. AMIODARONE [Concomitant]
     Active Substance: AMIODARONE
  17. FAMOTIDINE. [Concomitant]
     Active Substance: FAMOTIDINE
  18. ASPIRIN. [Concomitant]
     Active Substance: ASPIRIN

REACTIONS (13)
  - Dyspnoea [Unknown]
  - Oedema peripheral [Unknown]
  - Faeces discoloured [Unknown]
  - Ocular hyperaemia [Unknown]
  - Diarrhoea [Unknown]
  - Eye pain [Unknown]
  - Corneal abrasion [Unknown]
  - Abdominal pain [Unknown]
  - Dizziness [Unknown]
  - Cardiac failure [Unknown]
  - Gastroenteritis [Unknown]
  - Haemoglobin decreased [Unknown]
  - Haemorrhoids [Unknown]

NARRATIVE: CASE EVENT DATE: 20190531
